FAERS Safety Report 12042224 (Version 3)
Quarter: 2016Q2

REPORT INFORMATION
  Report Type: Spontaneous
  Country: FR (occurrence: FR)
  Receive Date: 20160208
  Receipt Date: 20160502
  Transmission Date: 20160815
  Serious: Yes (Life-Threatening, Hospitalization)
  Sender: FDA-Public Use
  Company Number: FR-OCTA-ALB01015FR

PATIENT
  Age: 19 Year
  Sex: Male

DRUGS (1)
  1. ALBUNORM 5% [Suspect]
     Active Substance: ALBUMIN HUMAN
     Indication: TRANSPLANT REJECTION
     Route: 042
     Dates: start: 20151213, end: 20151214

REACTIONS (1)
  - Circulatory collapse [Recovered/Resolved]

NARRATIVE: CASE EVENT DATE: 20151214
